FAERS Safety Report 9099259 (Version 1)
Quarter: 2013Q1

REPORT INFORMATION
  Report Type: Spontaneous
  Country: US (occurrence: US)
  Receive Date: 20130214
  Receipt Date: 20130214
  Transmission Date: 20140127
  Serious: No
  Sender: FDA-Public Use
  Company Number: US-PFIZER INC-2013055467

PATIENT
  Age: 61 Year
  Sex: Female
  Weight: 52.15 kg

DRUGS (1)
  1. ALSUMA [Suspect]
     Dosage: ONCE
     Dates: start: 20130208, end: 20130208

REACTIONS (3)
  - Accidental exposure to product [Unknown]
  - Local swelling [Not Recovered/Not Resolved]
  - Product quality issue [Unknown]
